FAERS Safety Report 4431605-X (Version None)
Quarter: 2004Q3

REPORT INFORMATION
  Report Type: 
  Country: None (occurrence: None)
  Receive Date: 20040726
  Receipt Date: 20040130
  Transmission Date: 20050211
  Serious: No
  Sender: FDA-Public Use
  Company Number: REM_00048_2004

PATIENT
  Age: 69 Year
  Sex: Female
  Weight: 100 kg

DRUGS (13)
  1. REMODULIN [Suspect]
     Indication: PULMONARY HYPERTENSION
     Dosage: 20 NG/KG/MIN CONTINUOUS SC
     Route: 058
     Dates: start: 20020812
  2. TRACLEER [Concomitant]
  3. LASIX [Concomitant]
  4. DITROPAN [Concomitant]
  5. ALDACTONE [Concomitant]
  6. SYNTHROID [Concomitant]
  7. FOLIC ACID [Concomitant]
  8. MIRTAZAPINE [Concomitant]
  9. DIGITEK [Concomitant]
  10. ACETAZOLAMIDE [Concomitant]
  11. DETROL [Concomitant]
  12. ASPIRIN [Concomitant]
  13. MULTI-VITAMINS [Concomitant]

REACTIONS (4)
  - INFUSION SITE BURNING [None]
  - INFUSION SITE ERYTHEMA [None]
  - INFUSION SITE PRURITUS [None]
  - INFUSION SITE SWELLING [None]
